FAERS Safety Report 24406883 (Version 1)
Quarter: 2024Q4

REPORT INFORMATION
  Report Type: Spontaneous
  Country: US (occurrence: None)
  Receive Date: 20241006
  Receipt Date: 20241006
  Transmission Date: 20250115
  Serious: Yes (unspecified)
  Sender: Public
  Company Number: None

PATIENT
  Age: 50 Year
  Sex: Female
  Weight: 60.75 kg

DRUGS (5)
  1. CYMBALTA [Suspect]
     Active Substance: DULOXETINE HYDROCHLORIDE
     Indication: Arthralgia
     Dosage: FREQUENCY : DAILY;?
     Route: 048
     Dates: start: 20240810
  2. LAMOTRIGINE [Concomitant]
     Active Substance: LAMOTRIGINE
  3. BUSPIRONE [Concomitant]
  4. Focalin [Concomitant]
  5. VITAMINS [Concomitant]
     Active Substance: VITAMINS

REACTIONS (6)
  - Diarrhoea [None]
  - Tinnitus [None]
  - Somnolence [None]
  - Anxiety [None]
  - Sexual dysfunction [None]
  - Paraesthesia [None]

NARRATIVE: CASE EVENT DATE: 20240810
